FAERS Safety Report 20582521 (Version 1)
Quarter: 2022Q1

REPORT INFORMATION
  Report Type: Spontaneous
  Country: SE (occurrence: SE)
  Receive Date: 20220311
  Receipt Date: 20220311
  Transmission Date: 20220423
  Serious: Yes (Other)
  Sender: FDA-Public Use
  Company Number: SE-ABBVIE-22K-150-4311594-00

PATIENT
  Sex: Male

DRUGS (1)
  1. VALPROATE SODIUM [Suspect]
     Active Substance: VALPROATE SODIUM
     Indication: Product used for unknown indication
     Route: 065

REACTIONS (6)
  - Hepatic failure [Unknown]
  - Balance disorder [Unknown]
  - Disturbance in attention [Unknown]
  - Panic disorder [Unknown]
  - Weight decreased [Unknown]
  - Muscular weakness [Unknown]
